FAERS Safety Report 4668578-0 (Version None)
Quarter: 2005Q2

REPORT INFORMATION
  Report Type: 
  Country: None (occurrence: None)
  Receive Date: 20050519
  Receipt Date: 20050506
  Transmission Date: 20051028
  Serious: Yes (Disabling, Other)
  Sender: FDA-Public Use
  Company Number: 2005071750

PATIENT
  Age: 80 Year
  Sex: Female
  Weight: 61.2356 kg

DRUGS (5)
  1. LIPITOR [Suspect]
     Indication: BLOOD CHOLESTEROL INCREASED
     Dosage: (DAILY), ORAL
     Route: 048
     Dates: start: 20050301, end: 20050301
  2. ARTHROTEC [Suspect]
     Indication: RHEUMATOID ARTHRITIS
  3. METHOTREXATE [Suspect]
     Indication: RHEUMATOID ARTHRITIS
     Dates: end: 20050301
  4. FOLIC ACID [Suspect]
     Indication: RHEUMATOID ARTHRITIS
     Dates: start: 20050301
  5. ETANERCEPT (ETANERCEPT) [Concomitant]

REACTIONS (12)
  - ARTHRALGIA [None]
  - CONDITION AGGRAVATED [None]
  - DYSSTASIA [None]
  - FIBROMYALGIA [None]
  - HEPATIC ENZYME INCREASED [None]
  - IMPAIRED DRIVING ABILITY [None]
  - MACULAR DEGENERATION [None]
  - MYALGIA [None]
  - PAIN IN EXTREMITY [None]
  - RHEUMATOID ARTHRITIS [None]
  - VERTIGO [None]
  - VISUAL DISTURBANCE [None]
